FAERS Safety Report 23409383 (Version 3)
Quarter: 2024Q1

REPORT INFORMATION
  Report Type: Other
  Country: CA (occurrence: None)
  Receive Date: 20240117
  Receipt Date: 20240308
  Transmission Date: 20240409
  Serious: Yes (Other)
  Sender: FDA-Public Use
  Company Number: CA-ROCHE-3487669

PATIENT
  Age: 49 Year
  Sex: Female

DRUGS (4)
  1. OCREVUS [Suspect]
     Active Substance: OCRELIZUMAB
     Indication: Relapsing-remitting multiple sclerosis
     Dosage: 300 MG AT DAY 0 AND 14, THEN 600 MG EVERY 6 MONTHS
     Route: 042
     Dates: start: 20230811
  2. BENADRYL [Suspect]
     Active Substance: DIPHENHYDRAMINE HYDROCHLORIDE
     Indication: Product used for unknown indication
     Route: 065
  3. CARBAMAZEPINE [Concomitant]
     Active Substance: CARBAMAZEPINE
     Dosage: 1 TABLET A DAY FOR 7 DAYS
  4. TERAZOSIN [Concomitant]
     Active Substance: TERAZOSIN HYDROCHLORIDE

REACTIONS (7)
  - Myelitis [Not Recovered/Not Resolved]
  - Depression [Not Recovered/Not Resolved]
  - Urinary tract infection [Not Recovered/Not Resolved]
  - Hepatic enzyme increased [Unknown]
  - Renal impairment [Not Recovered/Not Resolved]
  - Blood pressure decreased [Recovered/Resolved]
  - Infusion related reaction [Recovered/Resolved]

NARRATIVE: CASE EVENT DATE: 20230811
